FAERS Safety Report 25292968 (Version 2)
Quarter: 2025Q2

REPORT INFORMATION
  Report Type: Spontaneous
  Country: US (occurrence: US)
  Receive Date: 20250510
  Receipt Date: 20250603
  Transmission Date: 20250716
  Serious: No
  Sender: SANOFI AVENTIS
  Company Number: US-SA-2025SA123992

PATIENT
  Age: 13 Year
  Sex: Male

DRUGS (1)
  1. DUPIXENT [Suspect]
     Active Substance: DUPILUMAB
     Indication: Dermatitis atopic
     Dosage: 300 MG, QOW
     Route: 058
     Dates: start: 20250327

REACTIONS (14)
  - Pyrexia [Unknown]
  - Muscle spasms [Unknown]
  - Abdominal pain upper [Unknown]
  - Skin warm [Unknown]
  - Scab [Recovered/Resolved]
  - Rhinorrhoea [Unknown]
  - Nasal congestion [Unknown]
  - Influenza [Unknown]
  - Cough [Unknown]
  - Erythema [Unknown]
  - Oropharyngeal pain [Unknown]
  - Headache [Unknown]
  - Myalgia [Unknown]
  - Dermatitis atopic [Unknown]

NARRATIVE: CASE EVENT DATE: 20250101
